FAERS Safety Report 20023901 (Version 3)
Quarter: 2022Q2

REPORT INFORMATION
  Report Type: Other
  Country: BR (occurrence: BR)
  Receive Date: 20211102
  Receipt Date: 20220418
  Transmission Date: 20220720
  Serious: Yes (Other)
  Sender: FDA-Public Use
  Company Number: BR-002147023-NVSC2021BR003819

PATIENT
  Sex: Female

DRUGS (4)
  1. XOLAIR [Suspect]
     Active Substance: OMALIZUMAB
     Indication: Urticaria chronic
     Dosage: UNK
     Route: 065
     Dates: start: 20201126
  2. XOLAIR [Suspect]
     Active Substance: OMALIZUMAB
     Dosage: UNK (STARTED 9 MONTHS AGO) EVERY 4 WEEKS
     Route: 065
  3. XOLAIR [Suspect]
     Active Substance: OMALIZUMAB
     Dosage: UNK (EVERY 21 DAYS)
     Route: 065
  4. SAXENDA [Concomitant]
     Active Substance: LIRAGLUTIDE
     Indication: Product used for unknown indication
     Dosage: UNK
     Route: 065

REACTIONS (22)
  - Angioedema [Recovering/Resolving]
  - Anaphylactic reaction [Unknown]
  - Myasthenia gravis [Unknown]
  - Migraine [Recovered/Resolved]
  - Fatigue [Recovered/Resolved]
  - Somnolence [Recovered/Resolved]
  - Malaise [Recovered/Resolved]
  - Headache [Recovered/Resolved]
  - Drug interaction [Unknown]
  - Bronchospasm [Recovering/Resolving]
  - Sensitive skin [Not Recovered/Not Resolved]
  - Memory impairment [Not Recovered/Not Resolved]
  - Feeling abnormal [Not Recovered/Not Resolved]
  - Asthenia [Recovered/Resolved]
  - Application site bruise [Recovered/Resolved]
  - Fatigue [Recovered/Resolved]
  - Urticaria [Recovering/Resolving]
  - Cardiovascular disorder [Unknown]
  - Application site pain [Recovered/Resolved]
  - Contusion [Not Recovered/Not Resolved]
  - Product prescribing error [Unknown]
  - Inappropriate schedule of product administration [Unknown]
